FAERS Safety Report 8083719-3 (Version None)
Quarter: 2012Q1

REPORT INFORMATION
  Report Type: 
  Country: None (occurrence: None)
  Receive Date: 20120127
  Receipt Date: 20110123
  Transmission Date: 20120608
  Serious: No
  Sender: FDA-Public Use
  Company Number: US-ABBOTT-11P-163-0700099-00

PATIENT
  Age: 45 Year
  Sex: Female

DRUGS (3)
  1. HUMIRA [Suspect]
     Dates: start: 20100801
  2. HUMIRA [Suspect]
     Indication: CROHN'S DISEASE
  3. WELLBUTRIN [Concomitant]
     Indication: DEPRESSION

REACTIONS (7)
  - BLOOD PRESSURE INCREASED [None]
  - FEELING HOT [None]
  - INJECTION SITE ERYTHEMA [None]
  - INJECTION SITE PRURITUS [None]
  - PRURITUS [None]
  - ANKYLOSING SPONDYLITIS [None]
  - ERYTHEMA [None]
